FAERS Safety Report 19282249 (Version 1)
Quarter: 2021Q2

REPORT INFORMATION
  Report Type: Spontaneous
  Country: US (occurrence: US)
  Receive Date: 20210520
  Receipt Date: 20210520
  Transmission Date: 20210717
  Serious: No
  Sender: FDA-Public Use
  Company Number: US-ELI_LILLY_AND_COMPANY-US202105009016

PATIENT
  Age: 61 Year
  Sex: Female

DRUGS (6)
  1. ETESEVIMAB. [Suspect]
     Active Substance: ETESEVIMAB
     Indication: COVID-19
     Dosage: 1400 MG, SINGLE
     Route: 042
     Dates: start: 20210414, end: 20210414
  2. ZOFRAN [Concomitant]
     Active Substance: ONDANSETRON HYDROCHLORIDE
     Indication: COVID-19
     Dosage: UNK, UNKNOWN
     Route: 065
  3. BAMLANIVIMAB. [Suspect]
     Active Substance: BAMLANIVIMAB
     Indication: COVID-19
     Dosage: 700 MG, SINGLE
     Route: 042
     Dates: start: 20210414, end: 20210414
  4. TYLENOL [Concomitant]
     Active Substance: ACETAMINOPHEN
     Indication: COVID-19
     Dosage: UNK, UNKNOWN
     Route: 065
  5. ZOFRAN [Concomitant]
     Active Substance: ONDANSETRON HYDROCHLORIDE
     Indication: NAUSEA
  6. MOTRIN [Concomitant]
     Active Substance: IBUPROFEN
     Indication: COVID-19
     Dosage: 800 MG, UNKNOWN
     Route: 065

REACTIONS (21)
  - Asthenia [Recovered/Resolved]
  - Neck pain [Recovered/Resolved]
  - Decreased appetite [Recovered/Resolved]
  - Headache [Recovered/Resolved]
  - Nausea [Recovered/Resolved]
  - Abdominal pain upper [Recovered/Resolved]
  - Dehydration [Recovered/Resolved]
  - Drug ineffective [Recovered/Resolved]
  - Dysuria [Recovered/Resolved]
  - Skin tightness [Recovered/Resolved]
  - Dry mouth [Recovered/Resolved]
  - Fatigue [Not Recovered/Not Resolved]
  - Cough [Recovered/Resolved]
  - Speech disorder [Recovered/Resolved]
  - Chapped lips [Recovered/Resolved]
  - Ageusia [Recovered/Resolved]
  - Pyrexia [Recovered/Resolved]
  - Chills [Recovered/Resolved]
  - Pain [Recovered/Resolved]
  - Hallucination [Recovered/Resolved]
  - Thirst decreased [Recovered/Resolved]

NARRATIVE: CASE EVENT DATE: 202104
